FAERS Safety Report 6155360-0 (Version None)
Quarter: 2009Q2

REPORT INFORMATION
  Report Type: 
  Country: None (occurrence: None)
  Receive Date: 20090415
  Receipt Date: 20090409
  Transmission Date: 20091009
  Serious: Yes (Other)
  Sender: FDA-Public Use
  Company Number: US-ALLERGAN-0814732US

PATIENT
  Sex: Male
  Weight: 48.526 kg

DRUGS (2)
  1. BOTOX [Suspect]
     Indication: MUSCLE SPASTICITY
     Dosage: 200 UNITS, UNK
     Route: 030
     Dates: start: 20081007, end: 20081007
  2. BOTOX [Suspect]
     Dosage: 100 UNITS, SINGLE
     Route: 030
     Dates: start: 20080701, end: 20080701

REACTIONS (2)
  - ABASIA [None]
  - CARDIAC FAILURE CONGESTIVE [None]
